FAERS Safety Report 4832614-9 (Version None)
Quarter: 2005Q4

REPORT INFORMATION
  Report Type: 
  Country: None (occurrence: None)
  Receive Date: 20051121
  Receipt Date: 20051109
  Transmission Date: 20060501
  Serious: Yes (Hospitalization)
  Sender: FDA-Public Use
  Company Number: US-JNJFOC-20051102893

PATIENT
  Sex: Male

DRUGS (32)
  1. INFLIXIMAB [Suspect]
     Indication: RHEUMATOID ARTHRITIS
     Route: 042
  2. CELEBREX [Concomitant]
  3. CLONAZEPAM [Concomitant]
  4. COZAAR [Concomitant]
  5. COZAAR [Concomitant]
  6. CORTISONE ACETATE [Concomitant]
  7. DARVOCET-N 100 [Concomitant]
  8. DARVOCET-N 100 [Concomitant]
  9. ASPIRIN [Concomitant]
  10. FLUOCINONIDE [Concomitant]
  11. FOLIC ACID [Concomitant]
  12. METHOTREXATE [Concomitant]
  13. NORVASC [Concomitant]
  14. PERCOCET [Concomitant]
  15. PERCOCET [Concomitant]
     Dosage: DAILY
  16. PLAVIX [Concomitant]
  17. ACIPHEX [Concomitant]
  18. LIPITOR [Concomitant]
     Dosage: DAILY
  19. LIPITOR [Concomitant]
  20. PREDNISONE [Concomitant]
  21. CALCIUM GLUCONATE [Concomitant]
  22. ELAVIL [Concomitant]
     Dosage: AT BEDTIME
  23. FLEXERIL [Concomitant]
  24. MAGNESIUM SULFATE [Concomitant]
  25. LEXAPRO [Concomitant]
  26. PROTONIX [Concomitant]
  27. SINEQUAN [Concomitant]
     Dosage: AT BEDTIME
  28. SPIRIVA [Concomitant]
  29. ZYBAN [Concomitant]
  30. MAALOX FAST BLOCKER [Concomitant]
  31. MAALOX FAST BLOCKER [Concomitant]
  32. MILK OF MAGNESIA TAB [Concomitant]

REACTIONS (5)
  - BENIGN PROSTATIC HYPERPLASIA [None]
  - BIOPSY ARTERY [None]
  - CERVICAL SPINAL STENOSIS [None]
  - CONVULSION [None]
  - URINARY RETENTION [None]
